FAERS Safety Report 22630508 (Version 1)
Quarter: 2023Q2

REPORT INFORMATION
  Report Type: Spontaneous
  Country: IT (occurrence: IT)
  Receive Date: 20230622
  Receipt Date: 20230622
  Transmission Date: 20230722
  Serious: Yes (Other)
  Sender: FDA-Public Use
  Company Number: IT-SANOFI-01627211

PATIENT
  Age: 71 Year
  Sex: Male

DRUGS (2)
  1. HEPARIN SODIUM [Suspect]
     Active Substance: HEPARIN SODIUM
     Dosage: UNK
     Dates: end: 202211
  2. ENOXAPARIN SODIUM [Suspect]
     Active Substance: ENOXAPARIN SODIUM
     Indication: Foot fracture
     Dosage: 0.4 ML
     Route: 058
     Dates: start: 202211, end: 202211

REACTIONS (6)
  - Muscle rupture [Unknown]
  - Dysuria [Unknown]
  - Renal disorder [Unknown]
  - Peripheral swelling [Not Recovered/Not Resolved]
  - Drug hypersensitivity [Unknown]
  - Throat irritation [Unknown]
